FAERS Safety Report 23035178 (Version 6)
Quarter: 2023Q4

REPORT INFORMATION
  Report Type: Report from Study
  Country: JP (occurrence: JP)
  Receive Date: 20231005
  Receipt Date: 20231214
  Transmission Date: 20240110
  Serious: Yes (Other)
  Sender: FDA-Public Use
  Company Number: JP-JNJFOC-20230870402

PATIENT
  Age: 76 Year
  Sex: Female
  Weight: 40.5 kg

DRUGS (14)
  1. BORTEZOMIB [Suspect]
     Active Substance: BORTEZOMIB
     Indication: Plasma cell myeloma
     Dosage: UNK
     Route: 065
  2. FEBUXOSTAT [Suspect]
     Active Substance: FEBUXOSTAT
     Indication: Product used for unknown indication
     Dosage: 60 MILLIGRAM, QD
     Route: 048
     Dates: start: 20230319, end: 20230328
  3. DARATUMUMAB [Suspect]
     Active Substance: DARATUMUMAB
     Indication: Plasma cell myeloma
     Dosage: 1800 MILLIGRAM, QD
     Route: 058
     Dates: start: 20230322, end: 20230322
  4. DARATUMUMAB [Suspect]
     Active Substance: DARATUMUMAB
     Dosage: 1800 MILLIGRAM, QD
     Route: 058
     Dates: start: 20230329, end: 20230329
  5. DARATUMUMAB [Suspect]
     Active Substance: DARATUMUMAB
     Dosage: 1800 MILLIGRAM, QD
     Route: 058
     Dates: start: 20230405, end: 20230405
  6. DARATUMUMAB [Suspect]
     Active Substance: DARATUMUMAB
     Dosage: 1800 MILLIGRAM, QD
     Route: 058
     Dates: start: 20230502, end: 20230502
  7. DARATUMUMAB [Suspect]
     Active Substance: DARATUMUMAB
     Dosage: 1800 MILLIGRAM, QD
     Route: 058
     Dates: start: 20230509, end: 20230509
  8. DEXAMETHASONE [Concomitant]
     Active Substance: DEXAMETHASONE
     Indication: Plasma cell myeloma
     Dosage: UNK
     Route: 065
  9. AUGMENTIN [Concomitant]
     Active Substance: AMOXICILLIN\CLAVULANATE POTASSIUM
     Indication: Urinary tract infection
     Dosage: 750 MILLIGRAM, QD
     Route: 065
     Dates: start: 20230407, end: 20230420
  10. ACYCLOVIR [Concomitant]
     Active Substance: ACYCLOVIR
     Indication: Herpes zoster
     Dosage: 250 MILLIGRAM, QD
     Route: 065
     Dates: start: 20230420, end: 20230427
  11. AMINO ACIDS\DEXTROSE\ELECTROLYTES NOS\MINERALS\VITAMINS [Concomitant]
     Active Substance: AMINO ACIDS\DEXTROSE\ELECTROLYTES NOS\MINERALS\VITAMINS
     Indication: Decreased appetite
     Dosage: 1000 MILLILITER, QD
     Route: 065
     Dates: start: 20230421, end: 20230512
  12. SITAFLOXACIN [Concomitant]
     Active Substance: SITAFLOXACIN
     Indication: Urinary tract infection
     Dosage: 100 MILLIGRAM, QD
     Route: 065
     Dates: start: 20230421, end: 20230427
  13. NOREPINEPHRINE [Concomitant]
     Active Substance: NOREPINEPHRINE
     Indication: Blood pressure decreased
     Dosage: UNK
     Route: 065
     Dates: start: 20230422, end: 20230508
  14. EDARAVONE [Concomitant]
     Active Substance: EDARAVONE
     Indication: Cerebral microinfarction
     Dosage: UNK
     Route: 041
     Dates: start: 20230512, end: 20230513

REACTIONS (7)
  - Dehydration [Unknown]
  - Liver disorder [Not Recovered/Not Resolved]
  - Cerebral microinfarction [Not Recovered/Not Resolved]
  - Blood pressure decreased [Recovering/Resolving]
  - Urinary tract infection [Recovering/Resolving]
  - Herpes zoster [Unknown]
  - Decreased appetite [Unknown]

NARRATIVE: CASE EVENT DATE: 20230327
